FAERS Safety Report 6104827-X (Version None)
Quarter: 2009Q1

REPORT INFORMATION
  Report Type: 
  Country: None (occurrence: None)
  Receive Date: 20090306
  Receipt Date: 20090303
  Transmission Date: 20090719
  Serious: No
  Sender: FDA-Public Use
  Company Number: US-JNJFOC-20090300967

PATIENT
  Sex: Female
  Weight: 58.97 kg

DRUGS (7)
  1. FENTANYL TRANSDERMAL SYSTEM [Suspect]
     Indication: NECK PAIN
     Route: 062
  2. FENTANYL TRANSDERMAL SYSTEM [Suspect]
     Indication: BACK PAIN
     Route: 062
  3. SEROQUEL [Concomitant]
     Indication: BIPOLAR DISORDER
     Route: 048
  4. KLONOPIN [Concomitant]
     Indication: NERVOUSNESS
     Route: 048
  5. ADDERALL 10 [Concomitant]
     Indication: BIPOLAR DISORDER
     Route: 048
  6. ANAFRANIL [Concomitant]
     Indication: OBSESSIVE-COMPULSIVE DISORDER
     Route: 048
  7. TRILEPTAL [Concomitant]
     Indication: BIPOLAR DISORDER
     Route: 048

REACTIONS (2)
  - DRUG INEFFECTIVE [None]
  - WRONG TECHNIQUE IN DRUG USAGE PROCESS [None]
